FAERS Safety Report 8436147-2 (Version None)
Quarter: 2012Q2

REPORT INFORMATION
  Report Type: 
  Country: None (occurrence: None)
  Receive Date: 20120614
  Receipt Date: 20120606
  Transmission Date: 20120825
  Serious: Yes (Hospitalization)
  Sender: FDA-Public Use
  Company Number: IT-NOVOPROD-352584

PATIENT
  Age: 71 Year
  Sex: Male

DRUGS (6)
  1. ENALAPRIL MALEATE [Concomitant]
     Dosage: 1 TAB, QD
     Route: 048
  2. PROTAPHANE [Suspect]
     Indication: TYPE 1 DIABETES MELLITUS
     Dosage: 13 IU, QD
     Route: 058
     Dates: start: 20100101
  3. ASPIRIN [Concomitant]
  4. LANTUS [Concomitant]
     Dosage: 18 U, QD
     Route: 058
     Dates: start: 20100101
  5. HUMULIN                            /00646003/ [Concomitant]
     Dosage: 17 IU, QD
     Route: 058
     Dates: start: 20100101
  6. TIMOLOL MALEATE [Concomitant]

REACTIONS (4)
  - PRESYNCOPE [None]
  - SOPOR [None]
  - HYPOGLYCAEMIA [None]
  - HEAD INJURY [None]
